FAERS Safety Report 5724087-9 (Version None)
Quarter: 2008Q2

REPORT INFORMATION
  Report Type: 
  Country: None (occurrence: None)
  Receive Date: 20080430
  Receipt Date: 20080428
  Transmission Date: 20081010
  Serious: Yes (Disabling)
  Sender: FDA-Public Use
  Company Number: GB-BOEHRINGER INGELHEIM GMBH, GERMANY-2008-UK-01129UK

PATIENT
  Age: 72 Year
  Sex: Female

DRUGS (5)
  1. SPIRIVA [Suspect]
     Indication: CHRONIC OBSTRUCTIVE PULMONARY DISEASE
     Route: 055
     Dates: start: 20080326, end: 20080404
  2. DOSULEPIN [Concomitant]
     Route: 048
     Dates: start: 20061218
  3. LEVOTHYROXINE SODIUM [Concomitant]
     Route: 048
     Dates: start: 20061018
  4. RAMIPRIL [Concomitant]
     Route: 048
     Dates: start: 20070324
  5. SIMVASTATIN [Concomitant]
     Route: 048
     Dates: start: 19970401

REACTIONS (2)
  - MICTURITION URGENCY [None]
  - POLLAKIURIA [None]
